FAERS Safety Report 24727986 (Version 2)
Quarter: 2024Q4

REPORT INFORMATION
  Report Type: Spontaneous
  Country: US (occurrence: US)
  Receive Date: 20241212
  Receipt Date: 20241220
  Transmission Date: 20250115
  Serious: Yes (Life-Threatening, Hospitalization, Other)
  Sender: PFIZER
  Company Number: US-PFIZER INC-PV202400160608

PATIENT
  Age: 55 Year
  Sex: Female

DRUGS (1)
  1. LEVOTHYROXINE SODIUM [Suspect]
     Active Substance: LEVOTHYROXINE SODIUM
     Dosage: 8 MG, A BOTTLE (WHICH CONTAINED A 3-MONTH SUPPLY)

REACTIONS (3)
  - Overdose [Unknown]
  - Cardiac arrest [Recovered/Resolved]
  - Thyrotoxic crisis [Unknown]
